FAERS Safety Report 22530694 (Version 1)
Quarter: 2023Q2

REPORT INFORMATION
  Report Type: Spontaneous
  Country: US (occurrence: US)
  Receive Date: 20230607
  Receipt Date: 20230607
  Transmission Date: 20230721
  Serious: No
  Sender: FDA-Public Use
  Company Number: US-SA-SAC20230606000343

PATIENT
  Age: 17 Year
  Sex: Female
  Weight: 66.1 kg

DRUGS (7)
  1. DUPIXENT [Suspect]
     Active Substance: DUPILUMAB
     Indication: Dermatitis atopic
     Dosage: 300 MG, QOW
     Route: 058
     Dates: start: 20210421
  2. XYZAL [Concomitant]
     Active Substance: LEVOCETIRIZINE DIHYDROCHLORIDE
  3. LEVONORGESTREL [Concomitant]
     Active Substance: LEVONORGESTREL
  4. ESTRADIOL [Concomitant]
     Active Substance: ESTRADIOL
  5. NITROFURANTOIN [Concomitant]
     Active Substance: NITROFURANTOIN
  6. ALBUTEROL SULFATE [Concomitant]
     Active Substance: ALBUTEROL SULFATE
  7. AUVI-Q [Concomitant]
     Active Substance: EPINEPHRINE

REACTIONS (1)
  - Inappropriate schedule of product administration [Unknown]
